FAERS Safety Report 7624787-X (Version None)
Quarter: 2011Q3

REPORT INFORMATION
  Report Type: 
  Country: None (occurrence: None)
  Receive Date: 20110720
  Receipt Date: 20110713
  Transmission Date: 20111222
  Serious: Yes (Life-Threatening, Hospitalization, Other)
  Sender: FDA-Public Use
  Company Number: JP-BAYER-201012802BYL

PATIENT
  Age: 58 Year
  Sex: Female

DRUGS (13)
  1. RIMACTANE [Concomitant]
  2. AMPICILLIN SODIUM/SULBACTAM SODIUM [Concomitant]
     Indication: PNEUMONIA
     Route: 041
     Dates: start: 20100430, end: 20100506
  3. AVELOX [Suspect]
  4. RIMACTANE [Concomitant]
     Indication: PNEUMONIA
     Route: 048
     Dates: start: 20100501, end: 20100503
  5. CLARITHROMYCIN [Concomitant]
  6. LEVOFLOXACIN [Suspect]
     Indication: PNEUMONIA
     Dosage: 500 MG (DAILY DOSE), , ORAL
     Route: 048
     Dates: start: 20100419, end: 20100421
  7. AMPICILLIN SODIUM/SULBACTAM SODIUM [Concomitant]
  8. AVELOX [Suspect]
     Indication: PNEUMONIA
     Route: 048
     Dates: start: 20100501, end: 20100507
  9. MUCOSOLVAN [Concomitant]
     Indication: PNEUMONIA
     Route: 048
     Dates: start: 20100430, end: 20100504
  10. CLARITHROMYCIN [Concomitant]
     Indication: PNEUMONIA
     Route: 048
     Dates: start: 20100428
  11. ZITHROMAX [Concomitant]
     Indication: PNEUMONIA
     Route: 048
     Dates: start: 20100430, end: 20100511
  12. ZITHROMAX [Concomitant]
  13. MUCOSOLVAN [Concomitant]

REACTIONS (6)
  - INTERSTITIAL LUNG DISEASE [None]
  - PNEUMONIA [None]
  - PNEUMOMEDIASTINUM [None]
  - NAUSEA [None]
  - HYPERTHERMIA [None]
  - BRONCHIECTASIS [None]
